FAERS Safety Report 9408094 (Version 2)
Quarter: 2013Q4

REPORT INFORMATION
  Report Type: Report from Study
  Country: US (occurrence: US)
  Receive Date: 20130718
  Receipt Date: 20131107
  Transmission Date: 20140711
  Serious: Yes (Hospitalization)
  Sender: FDA-Public Use
  Company Number: US-PURDUE-USA-2013-0104476

PATIENT
  Age: 45 Year
  Sex: Female

DRUGS (3)
  1. OXYCONTIN (NDA 22-272) [Suspect]
     Indication: OSTEOARTHRITIS
     Dosage: UNK
     Route: 048
     Dates: start: 2008
  2. OXYCONTIN (NDA 22-272) [Suspect]
     Dosage: 40 MG, Q12H
     Route: 048
  3. OXYCONTIN (NDA 22-272) [Suspect]
     Dosage: 2 TABLETS EVERY 12 HOURS
     Route: 048
     Dates: start: 201307

REACTIONS (7)
  - Atrioventricular block [Recovered/Resolved]
  - Renal failure [Not Recovered/Not Resolved]
  - Hepatic failure [Not Recovered/Not Resolved]
  - Hypotension [Not Recovered/Not Resolved]
  - Pneumonia [Recovered/Resolved]
  - Tooth infection [Not Recovered/Not Resolved]
  - Sinusitis [Not Recovered/Not Resolved]
